FAERS Safety Report 5942813-0 (Version None)
Quarter: 2008Q4

REPORT INFORMATION
  Report Type: 
  Country: None (occurrence: None)
  Receive Date: 20081103
  Receipt Date: 20081024
  Transmission Date: 20090506
  Serious: Yes (Other)
  Sender: FDA-Public Use
  Company Number: 2008BI010049

PATIENT
  Age: 58 Year
  Sex: Male

DRUGS (3)
  1. AVONEX [Suspect]
     Indication: MULTIPLE SCLEROSIS
     Dosage: 30 UG, QW; IM
     Route: 030
     Dates: start: 20020101
  2. CON MEDS [Concomitant]
  3. PREV MED [Concomitant]

REACTIONS (5)
  - CATARACT [None]
  - CONVULSION [None]
  - MULTIPLE SCLEROSIS [None]
  - RETINAL DETACHMENT [None]
  - RETINAL TEAR [None]
